FAERS Safety Report 12555224 (Version 3)
Quarter: 2016Q3

REPORT INFORMATION
  Report Type: Spontaneous
  Country: JP (occurrence: JP)
  Receive Date: 20160714
  Receipt Date: 20160727
  Transmission Date: 20161109
  Serious: Yes (Hospitalization)
  Sender: FDA-Public Use
  Company Number: JP-JNJFOC-20160707535

PATIENT
  Age: 44 Year
  Sex: Female

DRUGS (10)
  1. CELECOX [Concomitant]
     Active Substance: CELECOXIB
     Route: 048
  2. FELBINAC [Concomitant]
     Active Substance: FELBINAC
     Indication: ANALGESIC THERAPY
     Dosage: MEDICINE FOR EXTERNAL USE
     Route: 065
  3. SIMPONI [Suspect]
     Active Substance: GOLIMUMAB
     Indication: RHEUMATOID ARTHRITIS
     Route: 058
     Dates: start: 20151029, end: 20160419
  4. PROGRAF [Concomitant]
     Active Substance: TACROLIMUS\TACROLIMUS ANHYDROUS
     Indication: RHEUMATOID ARTHRITIS
     Route: 048
     Dates: end: 20160425
  5. SELBEX [Concomitant]
     Active Substance: TEPRENONE
     Route: 048
  6. SIMPONI [Suspect]
     Active Substance: GOLIMUMAB
     Indication: RHEUMATOID ARTHRITIS
     Route: 058
     Dates: start: 20121114
  7. LORATADINE. [Concomitant]
     Active Substance: LORATADINE
     Indication: RHINITIS ALLERGIC
     Route: 048
  8. PREDNISOLONE. [Concomitant]
     Active Substance: PREDNISOLONE
     Indication: RHEUMATOID ARTHRITIS
     Route: 048
  9. BACTRAMIN [Concomitant]
     Active Substance: SULFAMETHOXAZOLE\TRIMETHOPRIM
     Indication: SYSTEMIC MYCOSIS
     Route: 048
  10. LIPITOR [Concomitant]
     Active Substance: ATORVASTATIN CALCIUM
     Indication: HYPERLIPIDAEMIA
     Route: 048

REACTIONS (4)
  - Stomatitis [Recovered/Resolved]
  - Oral herpes [Recovered/Resolved]
  - Mouth ulceration [Recovered/Resolved]
  - Anal ulcer [Recovered/Resolved]

NARRATIVE: CASE EVENT DATE: 20151029
